FAERS Safety Report 6612686-1 (Version None)
Quarter: 2010Q1

REPORT INFORMATION
  Report Type: 
  Country: None (occurrence: None)
  Receive Date: 20100303
  Receipt Date: 20091214
  Transmission Date: 20100710
  Serious: No
  Sender: FDA-Public Use
  Company Number: US-BAYER-200942753NA

PATIENT
  Age: 80 Year
  Sex: Female
  Weight: 71 kg

DRUGS (1)
  1. ULTRAVIST 240 [Suspect]
     Indication: HAEMATURIA
     Dosage: AS USED: 193 ML  UNIT DOSE: 200 ML
     Dates: start: 20091214, end: 20091214

REACTIONS (3)
  - ERYTHEMA [None]
  - PRURITUS [None]
  - URTICARIA [None]
